FAERS Safety Report 12399794 (Version 5)
Quarter: 2018Q4

REPORT INFORMATION
  Report Type: Spontaneous
  Country: US (occurrence: US)
  Receive Date: 20160524
  Receipt Date: 20181128
  Transmission Date: 20190204
  Serious: Yes (Hospitalization, Other)
  Sender: FDA-Public Use
  Company Number: US-DSJP-DSU-2016-105230

PATIENT

DRUGS (3)
  1. BENICAR [Suspect]
     Active Substance: OLMESARTAN MEDOXOMIL
     Dosage: 10 MG, QD
     Route: 048
     Dates: start: 2006, end: 201401
  2. PROPAFENONE. [Concomitant]
     Active Substance: PROPAFENONE
     Indication: PRODUCT USED FOR UNKNOWN INDICATION
     Dosage: 300 MG, BID
     Route: 048
  3. BENICAR [Suspect]
     Active Substance: OLMESARTAN MEDOXOMIL
     Indication: HYPERTENSION
     Dosage: 20 MG, QD
     Dates: start: 2003, end: 20150217

REACTIONS (6)
  - Sprue-like enteropathy [Recovered/Resolved]
  - Gallbladder disorder [Recovered/Resolved]
  - Dyspnoea [Unknown]
  - Helicobacter infection [Recovered/Resolved]
  - Constipation [Recovered/Resolved]
  - Cholecystitis chronic [Unknown]

NARRATIVE: CASE EVENT DATE: 20070720
